FAERS Safety Report 8501374-2 (Version None)
Quarter: 2012Q3

REPORT INFORMATION
  Report Type: 
  Country: None (occurrence: None)
  Receive Date: 20120710
  Receipt Date: 20120627
  Transmission Date: 20120928
  Serious: No
  Sender: FDA-Public Use
  Company Number: US-ASTRAZENECA-2012SE43714

PATIENT
  Age: 9 Year
  Sex: Male
  Weight: 36.3 kg

DRUGS (2)
  1. XOPENEX [Concomitant]
  2. PULMICORT [Suspect]
     Indication: ASTHMA
     Dosage: 0.5 MG TWICE DAILY
     Route: 055

REACTIONS (2)
  - NASOPHARYNGITIS [None]
  - OFF LABEL USE [None]
